FAERS Safety Report 5933305-3 (Version None)
Quarter: 2008Q4

REPORT INFORMATION
  Report Type: 
  Country: None (occurrence: None)
  Receive Date: 20081028
  Receipt Date: 20081016
  Transmission Date: 20090506
  Serious: Yes (Hospitalization, Other)
  Sender: FDA-Public Use
  Company Number: FR-PFIZER INC-2008085409

PATIENT
  Sex: Male
  Weight: 70 kg

DRUGS (17)
  1. LYRICA [Suspect]
     Indication: NEURALGIA
     Dates: start: 20080403, end: 20080905
  2. LYRICA [Suspect]
     Indication: SCIATICA
  3. ACETAMINOPHEN [Suspect]
     Indication: SCIATICA
     Route: 048
     Dates: start: 20080801, end: 20080908
  4. ACETAMINOPHEN [Suspect]
     Dosage: DAILY DOSE:3GRAM
     Route: 042
     Dates: start: 20080903, end: 20080905
  5. ALL OTHER THERAPEUTIC PRODUCTS [Concomitant]
  6. BI-PROFENID [Concomitant]
     Route: 048
     Dates: start: 20080801, end: 20080826
  7. PANTOPRAZOLE SODIUM [Concomitant]
     Route: 048
     Dates: start: 20080801, end: 20080903
  8. COLTRAMYL [Concomitant]
     Route: 048
     Dates: start: 20080801, end: 20080827
  9. MYOLASTAN [Concomitant]
     Route: 048
     Dates: start: 20080827, end: 20080902
  10. CORTANCYL [Concomitant]
     Route: 048
     Dates: start: 20080827, end: 20080903
  11. TOPALGIC [Concomitant]
     Dates: start: 20080801, end: 20080903
  12. PROFENID [Concomitant]
     Route: 042
     Dates: start: 20080903, end: 20080905
  13. MOPRAL [Concomitant]
     Route: 042
     Dates: start: 20080903, end: 20080904
  14. SKENAN [Concomitant]
     Route: 048
     Dates: start: 20080903, end: 20080921
  15. MORPHINE [Concomitant]
     Dates: start: 20080903, end: 20080921
  16. VALIUM [Concomitant]
     Dates: start: 20080903, end: 20080908
  17. NEXIUM [Concomitant]
     Route: 048
     Dates: start: 20080903, end: 20080908

REACTIONS (6)
  - ABDOMINAL PAIN LOWER [None]
  - BLOOD ALKALINE PHOSPHATASE INCREASED [None]
  - CYTOLYTIC HEPATITIS [None]
  - DRY MOUTH [None]
  - GAMMA-GLUTAMYLTRANSFERASE INCREASED [None]
  - TRANSAMINASES INCREASED [None]
